FAERS Safety Report 20016824 (Version 1)
Quarter: 2021Q4

REPORT INFORMATION
  Report Type: Spontaneous
  Country: US (occurrence: None)
  Receive Date: 20211105
  Receipt Date: 20211105
  Transmission Date: 20220304
  Serious: Yes (Disabling)
  Sender: FDA-Public Use
  Company Number: None

PATIENT
  Age: 68 Year
  Sex: Male
  Weight: 78.75 kg

DRUGS (5)
  1. ROSUVASTATIN CALCIUM [Suspect]
     Active Substance: ROSUVASTATIN CALCIUM
     Indication: Product used for unknown indication
     Dosage: QUANTITY: 90 TABLETS
     Route: 048
     Dates: start: 20201031
  2. stadolol [Concomitant]
  3. ELIQUIS [Concomitant]
     Active Substance: APIXABAN
  4. ACETAMINOPHEN [Concomitant]
     Active Substance: ACETAMINOPHEN
  5. IBUPROFEN [Concomitant]
     Active Substance: IBUPROFEN

REACTIONS (11)
  - Chromaturia [None]
  - Urine abnormality [None]
  - Weight decreased [None]
  - Fatigue [None]
  - Pyrexia [None]
  - Myalgia [None]
  - Neck pain [None]
  - Arthralgia [None]
  - Headache [None]
  - Chest pain [None]
  - Decreased appetite [None]

NARRATIVE: CASE EVENT DATE: 20211001
